FAERS Safety Report 13566747 (Version 2)
Quarter: 2017Q2

REPORT INFORMATION
  Report Type: Spontaneous
  Country: US (occurrence: US)
  Receive Date: 20170522
  Receipt Date: 20170529
  Transmission Date: 20170830
  Serious: Yes (Hospitalization, Other)
  Sender: FDA-Public Use
  Company Number: US-WEST-WARD PHARMACEUTICALS CORP.-US-H14001-17-01603

PATIENT
  Age: 40 Year
  Sex: Male

DRUGS (2)
  1. VALPROIC ACID. [Suspect]
     Active Substance: VALPROIC ACID
     Indication: PRODUCT USED FOR UNKNOWN INDICATION
     Route: 065
     Dates: start: 20160826
  2. PROPOFOL. [Interacting]
     Active Substance: PROPOFOL
     Indication: PRODUCT USED FOR UNKNOWN INDICATION
     Route: 065
     Dates: start: 20160828

REACTIONS (3)
  - Thrombocytopenia [Unknown]
  - Drug interaction [Unknown]
  - Drug level changed [Unknown]
